FAERS Safety Report 4500873-8 (Version None)
Quarter: 2004Q4

REPORT INFORMATION
  Report Type: 
  Country: None (occurrence: None)
  Receive Date: 20041115
  Receipt Date: 20030605
  Transmission Date: 20050328
  Serious: Yes (Hospitalization, Other)
  Sender: FDA-Public Use
  Company Number: US-MERCK-0306USA00715

PATIENT
  Age: 47 Year
  Sex: Female

DRUGS (4)
  1. VIOXX [Suspect]
     Route: 048
  2. VIOXX [Suspect]
     Route: 048
  3. SERZONE [Concomitant]
     Route: 065
  4. FIORINAL [Concomitant]
     Route: 065

REACTIONS (25)
  - ADVERSE EVENT [None]
  - ANAEMIA [None]
  - ANGINA PECTORIS [None]
  - ARTHROPATHY [None]
  - ARTICULAR CALCIFICATION [None]
  - BLOOD PRESSURE INCREASED [None]
  - CARDIAC DISORDER [None]
  - CEREBROVASCULAR ACCIDENT [None]
  - CONDITION AGGRAVATED [None]
  - CONVULSION [None]
  - DEPRESSION [None]
  - DRUG EFFECT DECREASED [None]
  - DRUG INEFFECTIVE [None]
  - FEELING ABNORMAL [None]
  - FIBROMYALGIA [None]
  - INFECTIOUS MONONUCLEOSIS [None]
  - INFLAMMATORY BOWEL DISEASE [None]
  - INTERVERTEBRAL DISC DEGENERATION [None]
  - MIGRAINE [None]
  - MUSCLE SPASMS [None]
  - PNEUMONIA [None]
  - PYREXIA [None]
  - RESPIRATORY FAILURE [None]
  - SPONDYLOLISTHESIS [None]
  - TUBERCULIN TEST POSITIVE [None]
